FAERS Safety Report 9781833 (Version 2)
Quarter: 2013Q4

REPORT INFORMATION
  Report Type: Report from Study
  Country: GB (occurrence: GB)
  Receive Date: 20131225
  Receipt Date: 20131225
  Transmission Date: 20140711
  Serious: Yes (Hospitalization)
  Sender: FDA-Public Use
  Company Number: GB-ONYX-2013-1681

PATIENT
  Age: 63 Year
  Sex: Female

DRUGS (11)
  1. CARFILZOMIB [Suspect]
     Indication: PLASMA CELL MYELOMA
     Route: 042
     Dates: start: 20130819, end: 20130820
  2. CARFILZOMIB [Suspect]
     Route: 042
     Dates: start: 20130826, end: 20130904
  3. CARFILZOMIB [Suspect]
     Route: 042
     Dates: start: 20130917, end: 20131001
  4. CARFILZOMIB [Suspect]
     Route: 042
     Dates: start: 20131015, end: 20131015
  5. DEXAMETHASONE [Suspect]
     Indication: PLASMA CELL MYELOMA
     Route: 048
     Dates: start: 20130816, end: 20130903
  6. DEXAMETHASONE [Suspect]
     Route: 048
     Dates: start: 20131015, end: 20131015
  7. ZORAMORPH [Concomitant]
     Indication: ARTHRALGIA
     Route: 048
     Dates: start: 2013
  8. ACICLOVIR [Concomitant]
     Indication: PREMEDICATION
     Route: 048
     Dates: start: 20130816
  9. LANSOPRAZOLE [Concomitant]
     Indication: PREMEDICATION
     Route: 048
     Dates: start: 20130816
  10. NYSTATION [Concomitant]
     Indication: PREMEDICATION
     Route: 048
     Dates: start: 20130816
  11. OMEPRAZOLE [Concomitant]
     Indication: PREMEDICATION
     Route: 048
     Dates: start: 20130816

REACTIONS (1)
  - Sinus tachycardia [Recovered/Resolved]
